FAERS Safety Report 4986025-6 (Version None)
Quarter: 2006Q2

REPORT INFORMATION
  Report Type: 
  Country: None (occurrence: None)
  Receive Date: 20060428
  Receipt Date: 20060217
  Transmission Date: 20061013
  Serious: Yes (Hospitalization, Other)
  Sender: FDA-Public Use
  Company Number: US-AVENTIS-200611652US

PATIENT
  Sex: Female

DRUGS (5)
  1. KETEK [Suspect]
     Indication: SINUSITIS
     Route: 048
     Dates: start: 20060112, end: 20060201
  2. SINGULAIR [Suspect]
  3. ADVAIR DISKUS 100/50 [Concomitant]
     Dosage: DOSE: UNK
  4. FLONASE [Concomitant]
     Dosage: DOSE: UNK
  5. NASACORT [Concomitant]
     Dosage: DOSE: UNK

REACTIONS (24)
  - ABDOMINAL PAIN [None]
  - ALANINE AMINOTRANSFERASE INCREASED [None]
  - ASPARTATE AMINOTRANSFERASE INCREASED [None]
  - BLOOD ALBUMIN DECREASED [None]
  - BLOOD BILIRUBIN INCREASED [None]
  - BLOOD CALCIUM DECREASED [None]
  - BLOOD SODIUM DECREASED [None]
  - CHROMATURIA [None]
  - COLITIS [None]
  - DIARRHOEA [None]
  - DIVERTICULUM [None]
  - EOSINOPHIL COUNT INCREASED [None]
  - EOSINOPHILIA [None]
  - HAEMATOCRIT DECREASED [None]
  - HAEMOGLOBIN DECREASED [None]
  - HEPATIC ENZYME INCREASED [None]
  - HEPATITIS [None]
  - HEPATOMEGALY [None]
  - HEPATOTOXICITY [None]
  - INTERNATIONAL NORMALISED RATIO DECREASED [None]
  - PYREXIA [None]
  - RASH [None]
  - RECTAL POLYP [None]
  - RED BLOOD CELL COUNT DECREASED [None]
